FAERS Safety Report 13675701 (Version 1)
Quarter: 2017Q2

REPORT INFORMATION
  Report Type: Spontaneous
  Country: US (occurrence: US)
  Receive Date: 20170621
  Receipt Date: 20170621
  Transmission Date: 20170830
  Serious: Yes (Other)
  Sender: FDA-Public Use
  Company Number: US-ALLERGAN-1725751US

PATIENT
  Sex: Female

DRUGS (1)
  1. REFRESH PLUS [Suspect]
     Active Substance: CARBOXYMETHYLCELLULOSE SODIUM
     Indication: DRY EYE
     Route: 047

REACTIONS (4)
  - Brain neoplasm [Unknown]
  - Headache [Unknown]
  - Visual impairment [Unknown]
  - Vision blurred [Unknown]
